FAERS Safety Report 7969668-7 (Version None)
Quarter: 2011Q4

REPORT INFORMATION
  Report Type: 
  Country: None (occurrence: None)
  Receive Date: 20111212
  Receipt Date: 20111202
  Transmission Date: 20120403
  Serious: Yes (Hospitalization, Other)
  Sender: FDA-Public Use
  Company Number: CN-PFIZER INC-2011294593

PATIENT
  Age: 52 Year
  Sex: Male

DRUGS (7)
  1. ATORVASTATIN CALCIUM [Interacting]
     Indication: HYPERLIPIDAEMIA
     Dosage: UNK
     Dates: start: 20100516, end: 20100524
  2. HEPARIN-FRACTION [Concomitant]
     Indication: ANTICOAGULANT THERAPY
     Dosage: UNK
     Dates: start: 20100516
  3. AMIODARONE HYDROCHLORIDE [Interacting]
     Indication: VENTRICULAR TACHYCARDIA
     Dosage: 0.2 G, UNK
     Route: 042
     Dates: start: 20100517
  4. AMIODARONE HCL [Suspect]
     Indication: VENTRICULAR TACHYCARDIA
     Dosage: 0.2 G, EVERY 6 HOURS
     Route: 048
     Dates: start: 20100517, end: 20100520
  5. CLOPIDOGREL [Concomitant]
     Indication: ANTIPLATELET THERAPY
     Dosage: UNK
     Dates: start: 20100516
  6. AMIODARONE HCL [Interacting]
     Dosage: 0.2 G, 3X/DAY
     Route: 048
     Dates: start: 20100521, end: 20100527
  7. ASPIRIN [Concomitant]
     Indication: ANTIPLATELET THERAPY
     Dosage: UNK
     Dates: start: 20100516

REACTIONS (5)
  - GAMMA-GLUTAMYLTRANSFERASE INCREASED [None]
  - HEPATIC FUNCTION ABNORMAL [None]
  - ASPARTATE AMINOTRANSFERASE INCREASED [None]
  - DRUG INTERACTION [None]
  - ALANINE AMINOTRANSFERASE INCREASED [None]
